FAERS Safety Report 8417386-3 (Version None)
Quarter: 2012Q2

REPORT INFORMATION
  Report Type: 
  Country: None (occurrence: None)
  Receive Date: 20120606
  Receipt Date: 20120531
  Transmission Date: 20120825
  Serious: Yes (Other)
  Sender: FDA-Public Use
  Company Number: SE-B.I. PHARMACEUTICALS,INC./RIDGEFIELD-2012-SW-00444SW

PATIENT
  Age: 82 Year
  Sex: Female

DRUGS (11)
  1. BISOPROLOL SANDOZ [Concomitant]
     Dosage: FORMULATION: FILM-COATED TABLET 5 MG
  2. PRADAXA [Suspect]
     Indication: ATRIAL FIBRILLATION
     Dosage: 220 MG
     Route: 048
     Dates: start: 20120117
  3. ATACAND [Concomitant]
     Dosage: STRENGTH: 4 MG
  4. KALCIPOS-D [Concomitant]
     Dosage: STRENGTH: 500 MG / 400 IE
  5. DIGOXIN BIOPHAUSIA [Concomitant]
     Dosage: STRENGTH: 0.13 MG
  6. CITALOPRAM CNSPHARMA [Concomitant]
     Dosage: FORMULATION: FILM-COATED TABLET 20 MG
  7. ZOPIKLON UNSPECIFIED [Concomitant]
  8. DONEPEZIL ACTAVIS [Concomitant]
     Dosage: FORMULATION: FILM-COATED TABLET 10 MG
  9. BETOLVIDON [Concomitant]
     Dosage: STRENGTH: 1 MG
  10. LAMOTRIGIN ACTAVIS [Concomitant]
     Dosage: STRENGTH: 100 MG
  11. METFORMIN MEDA [Concomitant]
     Dosage: STRENGTH: 500 MG

REACTIONS (3)
  - NIGHTMARE [None]
  - GRAND MAL CONVULSION [None]
  - DIARRHOEA [None]
